FAERS Safety Report 24068098 (Version 4)
Quarter: 2025Q4

REPORT INFORMATION
  Report Type: Spontaneous
  Country: US (occurrence: US)
  Receive Date: 20240710
  Receipt Date: 20251106
  Transmission Date: 20260118
  Serious: No
  Sender: SANOFI AVENTIS
  Company Number: US-SANOFI-02124550

PATIENT
  Age: 69 Year
  Sex: Male

DRUGS (1)
  1. LANTUS SOLOSTAR [Suspect]
     Active Substance: INSULIN GLARGINE
     Indication: Type 1 diabetes mellitus
     Dosage: 62 IU, BID
     Route: 065

REACTIONS (6)
  - Blood glucose increased [Unknown]
  - Multiple use of single-use product [Unknown]
  - Device leakage [Unknown]
  - Hypoacusis [Unknown]
  - Off label use [Unknown]
  - Inappropriate schedule of product administration [Unknown]
